FAERS Safety Report 17164251 (Version 1)
Quarter: 2019Q4

REPORT INFORMATION
  Report Type: Spontaneous
  Country: US (occurrence: US)
  Receive Date: 20191217
  Receipt Date: 20191217
  Transmission Date: 20200122
  Serious: No
  Sender: FDA-Public Use
  Company Number: US-PFIZER INC-2019507390

PATIENT
  Age: 71 Year
  Sex: Female
  Weight: 58.96 kg

DRUGS (3)
  1. FLUSODEX [Concomitant]
     Dosage: UNK UNK, MONTHLY (MONTHLY INJECTION)
     Dates: start: 201904
  2. IBRANCE [Suspect]
     Active Substance: PALBOCICLIB
     Indication: BREAST CANCER METASTATIC
     Dosage: 125 MG, DAILY
     Dates: start: 201904
  3. ZOMETA [Concomitant]
     Active Substance: ZOLEDRONIC ACID
     Dosage: UNK (EVERY 3 MO INFUSION)

REACTIONS (9)
  - Vision blurred [Unknown]
  - White blood cell count decreased [Unknown]
  - Dry skin [Unknown]
  - Sinusitis [Recovered/Resolved]
  - Alopecia [Unknown]
  - Fatigue [Unknown]
  - Red blood cell count decreased [Unknown]
  - Weight decreased [Unknown]
  - Asthenia [Unknown]
